FAERS Safety Report 8353461-X (Version None)
Quarter: 2012Q2

REPORT INFORMATION
  Report Type: 
  Country: None (occurrence: None)
  Receive Date: 20120511
  Receipt Date: 20110329
  Transmission Date: 20120825
  Serious: No
  Sender: FDA-Public Use
  Company Number: US-GLAXOSMITHKLINE-A0920455A

PATIENT
  Age: 40 Year
  Sex: Female

DRUGS (5)
  1. RADIATION THERAPY [Concomitant]
  2. VITAMIN TAB [Concomitant]
  3. TYKERB [Suspect]
     Indication: BREAST CANCER
     Dosage: 4TAB PER DAY
     Route: 048
     Dates: start: 20110201
  4. SYNTHROID [Concomitant]
  5. HERCEPTIN [Concomitant]

REACTIONS (2)
  - INFLUENZA [None]
  - DIARRHOEA [None]
